FAERS Safety Report 14327719 (Version 3)
Quarter: 2018Q1

REPORT INFORMATION
  Report Type: Spontaneous
  Country: US (occurrence: US)
  Receive Date: 20171227
  Receipt Date: 20180320
  Transmission Date: 20180509
  Serious: No
  Sender: FDA-Public Use
  Company Number: US-PFIZER INC-2017547619

PATIENT
  Age: 71 Year
  Sex: Female
  Weight: 68.2 kg

DRUGS (14)
  1. PALBOCICLIB [Suspect]
     Active Substance: PALBOCICLIB
     Indication: IMMUNE ENHANCEMENT THERAPY
     Dosage: UNK, EVERY 2 WEEKS FOR 6 WEEKS
     Dates: start: 201801, end: 201801
  2. PALBOCICLIB [Suspect]
     Active Substance: PALBOCICLIB
     Dosage: UNK,ONCE A MONTH (MONTHLY)
     Dates: start: 201801, end: 201801
  3. FULVESTRANT. [Suspect]
     Active Substance: FULVESTRANT
     Indication: HORMONE THERAPY
     Dosage: UNK, EVERY 2 WEEKS FOR 6 WEEKS
     Dates: start: 201801, end: 201801
  4. NEXIUM [Concomitant]
     Active Substance: ESOMEPRAZOLE MAGNESIUM
     Dosage: UNK
  5. CELECOXIB. [Concomitant]
     Active Substance: CELECOXIB
     Dosage: UNK
  6. IBUPROFEN. [Concomitant]
     Active Substance: IBUPROFEN
     Dosage: UNK
  7. LETROZOLE. [Concomitant]
     Active Substance: LETROZOLE
     Dosage: 2.5 MG, DAILY
     Route: 048
     Dates: start: 2016
  8. TRAMADOL HCL [Concomitant]
     Active Substance: TRAMADOL HYDROCHLORIDE
     Dosage: UNK
  9. IBRANCE [Suspect]
     Active Substance: PALBOCICLIB
     Indication: BREAST CANCER METASTATIC
     Dosage: 125 MG, CYCLIC (21 DAYS ON AND 7 DAYS OFF)
     Route: 048
     Dates: start: 201711, end: 201801
  10. IBRANCE [Suspect]
     Active Substance: PALBOCICLIB
     Dosage: 125 MG, CYCLIC (21 DAYS ON 7 DAYS OFF)
     Route: 048
     Dates: start: 201712, end: 201802
  11. BENADRYL ALLERGY [Concomitant]
     Active Substance: DIPHENHYDRAMINE HYDROCHLORIDE
     Dosage: UNK
  12. FULVESTRANT. [Suspect]
     Active Substance: FULVESTRANT
     Dosage: UNK, ONCE A MONTH (MONTHLY)
     Dates: start: 201801, end: 201801
  13. CLINDAMYCIN HCL [Concomitant]
     Active Substance: CLINDAMYCIN HYDROCHLORIDE
     Dosage: UNK
  14. LORAZEPAM. [Concomitant]
     Active Substance: LORAZEPAM
     Dosage: UNK

REACTIONS (6)
  - Diarrhoea [Unknown]
  - Pharyngeal oedema [Recovering/Resolving]
  - Eye swelling [Recovering/Resolving]
  - Auricular swelling [Recovering/Resolving]
  - Candida infection [Recovering/Resolving]
  - Swelling face [Recovered/Resolved with Sequelae]

NARRATIVE: CASE EVENT DATE: 201711
